FAERS Safety Report 16841405 (Version 1)
Quarter: 2019Q3

REPORT INFORMATION
  Report Type: Spontaneous
  Country: MY (occurrence: MY)
  Receive Date: 20190923
  Receipt Date: 20190923
  Transmission Date: 20191005
  Serious: Yes (Hospitalization)
  Sender: FDA-Public Use
  Company Number: MY-GLAXOSMITHKLINE-MY2019APC171111

PATIENT

DRUGS (2)
  1. VENTOLIN [Suspect]
     Active Substance: ALBUTEROL SULFATE
     Indication: WHEEZING
     Dosage: 3 PUFF(S), UNK
     Route: 055
     Dates: start: 20190915, end: 20190918
  2. PREDNISOLONE. [Concomitant]
     Active Substance: PREDNISOLONE
     Indication: WHEEZING
     Dosage: 3 MG, 1D
     Route: 048
     Dates: start: 20190914

REACTIONS (2)
  - Dyspnoea [Recovering/Resolving]
  - Wheezing [Recovering/Resolving]

NARRATIVE: CASE EVENT DATE: 20190915
